FAERS Safety Report 14079845 (Version 1)
Quarter: 2017Q4

REPORT INFORMATION
  Report Type: Spontaneous
  Country: US (occurrence: US)
  Receive Date: 20171012
  Receipt Date: 20171012
  Transmission Date: 20180321
  Serious: No
  Sender: FDA-Public Use
  Company Number: US-AMNEAL PHARMACEUTICALS-2017AMN00819

PATIENT
  Age: 70 Year
  Sex: Female
  Weight: 70.3 kg

DRUGS (6)
  1. DICLOFENAC SODIUM. [Suspect]
     Active Substance: DICLOFENAC SODIUM
     Indication: SWELLING
     Dosage: UNK
     Dates: start: 20170809, end: 20170814
  2. LISINOPRIL. [Concomitant]
     Active Substance: LISINOPRIL
  3. DICLOFENAC SODIUM. [Suspect]
     Active Substance: DICLOFENAC SODIUM
     Indication: PAIN
  4. TRIAMTERENE/THIAZIDE [Concomitant]
  5. MULTIVITAMIN [Concomitant]
     Active Substance: VITAMINS
     Dosage: UNK
  6. SYNTHROID [Concomitant]
     Active Substance: LEVOTHYROXINE SODIUM
     Dosage: 100 MCG,

REACTIONS (2)
  - Drug eruption [Recovered/Resolved]
  - Application site acne [Recovered/Resolved]

NARRATIVE: CASE EVENT DATE: 201708
